FAERS Safety Report 9170286 (Version 2)
Quarter: 2015Q2

REPORT INFORMATION
  Report Type: Spontaneous
  Country: US (occurrence: US)
  Receive Date: 20130319
  Receipt Date: 20150406
  Transmission Date: 20150821
  Serious: Yes (Death, Congenital Anomaly, Other)
  Sender: FDA-Public Use
  Company Number: US-ELI_LILLY_AND_COMPANY-US201303003047

PATIENT
  Age: 0 Day

DRUGS (5)
  1. SEROQUEL [Concomitant]
     Active Substance: QUETIAPINE FUMARATE
     Dosage: 200 MG, QD
  2. FOLIC ACID. [Concomitant]
     Active Substance: FOLIC ACID
  3. ACYCLOVIR                          /00587301/ [Concomitant]
     Active Substance: ACYCLOVIR
  4. PROZAC [Suspect]
     Active Substance: FLUOXETINE HYDROCHLORIDE
     Indication: PRODUCT USED FOR UNKNOWN INDICATION
     Dosage: 20 MG, QD
     Route: 064
  5. MAGNESIUM [Concomitant]
     Active Substance: MAGNESIUM

REACTIONS (13)
  - Premature baby [Unknown]
  - Patent ductus arteriosus [Unknown]
  - Foetal growth restriction [Unknown]
  - Congenital cardiovascular anomaly [Fatal]
  - Aortic valve atresia [Unknown]
  - Coarctation of the aorta [Unknown]
  - Foetal alcohol syndrome [Unknown]
  - Dandy-Walker syndrome [Unknown]
  - Ventricular septal defect [Unknown]
  - Mitral valve disease [Unknown]
  - Foetal exposure during pregnancy [Recovered/Resolved]
  - Cardiomegaly [Unknown]
  - Respiratory distress [Unknown]

NARRATIVE: CASE EVENT DATE: 20100909
